FAERS Safety Report 13095240 (Version 1)
Quarter: 2017Q1

REPORT INFORMATION
  Report Type: Spontaneous
  Country: US (occurrence: US)
  Receive Date: 20170107
  Receipt Date: 20170107
  Transmission Date: 20170428
  Serious: No
  Sender: FDA-Public Use
  Company Number: US-DRREDDYS-DRL/USA/16/0077999

PATIENT
  Age: 72 Year
  Sex: Female
  Weight: 43.5 kg

DRUGS (4)
  1. HABITROL [Suspect]
     Active Substance: NICOTINE
     Route: 065
  2. HABITROL [Suspect]
     Active Substance: NICOTINE
     Indication: SMOKING CESSATION THERAPY
     Route: 065
     Dates: start: 20160229
  3. FLUCONAZOLE. [Concomitant]
     Active Substance: FLUCONAZOLE
     Indication: INFECTION
     Route: 065
     Dates: start: 20160307
  4. METRONIDAZOLE. [Concomitant]
     Active Substance: METRONIDAZOLE
     Indication: INFECTION
     Route: 065
     Dates: start: 20160307

REACTIONS (8)
  - Nausea [Not Recovered/Not Resolved]
  - Nicotine dependence [Not Recovered/Not Resolved]
  - Headache [Not Recovered/Not Resolved]
  - Treatment noncompliance [Unknown]
  - Tremor [Unknown]
  - Product adhesion issue [Unknown]
  - Abnormal dreams [Unknown]
  - Overdose [Unknown]

NARRATIVE: CASE EVENT DATE: 20160229
